FAERS Safety Report 15278648 (Version 1)
Quarter: 2018Q3

REPORT INFORMATION
  Report Type: Spontaneous
  Country: FR (occurrence: FR)
  Receive Date: 20180815
  Receipt Date: 20180815
  Transmission Date: 20181010
  Serious: Yes (Other)
  Sender: FDA-Public Use
  Company Number: FR-TEVA-2018-FR-939433

PATIENT
  Age: 12 Year
  Sex: Male

DRUGS (2)
  1. CARBOPLATIN. [Suspect]
     Active Substance: CARBOPLATIN
     Indication: PRODUCT USED FOR UNKNOWN INDICATION
     Dosage: REDUCED TO 1.5MG  INTERRUPTED AND RESTARTED
     Route: 048
     Dates: start: 20120918
  2. ABILIFY [Suspect]
     Active Substance: ARIPIPRAZOLE
     Indication: SCHIZOPHRENIA
     Dosage: INCREASED TO 10MG  08NOV2012?19NOV2012: 10MG
     Route: 048
     Dates: start: 20121118, end: 20121119

REACTIONS (5)
  - Off label use [Unknown]
  - Dysarthria [Recovered/Resolved]
  - Confusional state [Recovered/Resolved]
  - Dystonia [Unknown]
  - Dyskinesia [Recovered/Resolved]

NARRATIVE: CASE EVENT DATE: 20121118
